FAERS Safety Report 6328293-4 (Version None)
Quarter: 2009Q3

REPORT INFORMATION
  Report Type: 
  Country: None (occurrence: None)
  Receive Date: 20090825
  Receipt Date: 20090603
  Transmission Date: 20100115
  Serious: No
  Sender: FDA-Public Use
  Company Number: US-ABBOTT-09P-163-0578350-00

PATIENT
  Sex: Female
  Weight: 73.548 kg

DRUGS (5)
  1. SYNTHROID [Suspect]
     Indication: HYPOTHYROIDISM
     Dates: start: 19970101
  2. SYNTHROID [Suspect]
     Dates: start: 20070101
  3. SYNTHROID [Suspect]
  4. SYNTHROID [Suspect]
  5. COMPOUND BIOIDENTICAL HORMONE [Concomitant]
     Indication: DRUG USE FOR UNKNOWN INDICATION
     Route: 048

REACTIONS (4)
  - ABDOMINAL DISCOMFORT [None]
  - ABDOMINAL DISTENSION [None]
  - BLOOD THYROID STIMULATING HORMONE INCREASED [None]
  - COELIAC DISEASE [None]
